FAERS Safety Report 11413487 (Version 2)
Quarter: 2015Q3

REPORT INFORMATION
  Report Type: Spontaneous
  Country: US (occurrence: US)
  Receive Date: 20150821
  Receipt Date: 20150903
  Transmission Date: 20151125
  Serious: No
  Sender: FDA-Public Use
  Company Number: US-ELI_LILLY_AND_COMPANY-US201210007593

PATIENT
  Age: 82 Year
  Sex: Female

DRUGS (3)
  1. HUMULIN 70/30 [Suspect]
     Active Substance: INSULIN HUMAN
     Dosage: 44 U, PRN
  2. HUMALOG [Suspect]
     Active Substance: INSULIN LISPRO
     Dosage: 50 U, PRN
  3. HUMAN INSULIN [Suspect]
     Active Substance: INSULIN HUMAN
     Dosage: 30 U, EACH EVENING

REACTIONS (1)
  - Memory impairment [Unknown]
